FAERS Safety Report 25413700 (Version 2)
Quarter: 2025Q2

REPORT INFORMATION
  Report Type: Report from Study
  Country: CA (occurrence: CA)
  Receive Date: 20250609
  Receipt Date: 20250625
  Transmission Date: 20250716
  Serious: Yes (Other)
  Sender: FERRING
  Company Number: CA-FERRINGPH-2025FE02834

PATIENT

DRUGS (6)
  1. DEGARELIX [Suspect]
     Active Substance: DEGARELIX
     Indication: Hormone-dependent prostate cancer
     Dosage: 80 MG, MONTHLY
     Route: 058
     Dates: start: 20250531
  2. DEGARELIX [Suspect]
     Active Substance: DEGARELIX
     Dosage: 240 MG, ONCE/SINGLE
     Route: 058
     Dates: start: 20250429, end: 20250429
  3. APALUTAMIDE [Suspect]
     Active Substance: APALUTAMIDE
     Indication: Product used for unknown indication
     Route: 065
  4. ADALAT [Concomitant]
     Active Substance: NIFEDIPINE
     Route: 065
  5. SYNTHROID [Concomitant]
     Active Substance: LEVOTHYROXINE SODIUM
     Indication: Product used for unknown indication
     Route: 065
  6. FLOMAX [Concomitant]
     Active Substance: TAMSULOSIN HYDROCHLORIDE
     Indication: Product used for unknown indication
     Route: 065

REACTIONS (8)
  - Heart rate decreased [Not Recovered/Not Resolved]
  - Restless legs syndrome [Not Recovered/Not Resolved]
  - Blood pressure increased [Not Recovered/Not Resolved]
  - Initial insomnia [Not Recovered/Not Resolved]
  - Nocturia [Not Recovered/Not Resolved]
  - Poor quality sleep [Not Recovered/Not Resolved]
  - Blood thyroid stimulating hormone increased [Not Recovered/Not Resolved]
  - Headache [Not Recovered/Not Resolved]

NARRATIVE: CASE EVENT DATE: 20250501
